FAERS Safety Report 9057362 (Version 2)
Quarter: 2014Q2

REPORT INFORMATION
  Report Type: Spontaneous
  Country: JP (occurrence: JP)
  Receive Date: 20130204
  Receipt Date: 20140620
  Transmission Date: 20141212
  Serious: Yes (Other)
  Sender: FDA-Public Use
  Company Number: PHHY2013JP008816

PATIENT
  Age: 65 Year
  Sex: Female

DRUGS (4)
  1. 5-FLUOROURACIL [Suspect]
     Indication: CHEMOTHERAPY
  2. EPIRUBICIN [Suspect]
     Indication: CHEMOTHERAPY
  3. CYCLOPHOSPHAMIDE [Suspect]
     Indication: CHEMOTHERAPY
  4. STEROIDS NOS [Concomitant]
     Indication: DERMATOMYOSITIS

REACTIONS (4)
  - Disseminated intravascular coagulation [Recovered/Resolved]
  - Neutropenia [Recovered/Resolved]
  - Septic shock [Recovered/Resolved]
  - Infection [Recovered/Resolved]
